FAERS Safety Report 8265433-4 (Version None)
Quarter: 2012Q2

REPORT INFORMATION
  Report Type: 
  Country: None (occurrence: None)
  Receive Date: 20120406
  Receipt Date: 20120402
  Transmission Date: 20120825
  Serious: Yes (Other)
  Sender: FDA-Public Use
  Company Number: US-PFIZER INC-2012060490

PATIENT
  Sex: Female

DRUGS (2)
  1. TOVIAZ [Suspect]
     Dosage: 8 MG, UNK
  2. TOVIAZ [Suspect]
     Dosage: 4 MG, UNK

REACTIONS (6)
  - POLLAKIURIA [None]
  - ANGIOPATHY [None]
  - FEELING ABNORMAL [None]
  - MIDDLE INSOMNIA [None]
  - DRUG INEFFECTIVE [None]
  - MALAISE [None]
